FAERS Safety Report 7537665-1 (Version None)
Quarter: 2011Q2

REPORT INFORMATION
  Report Type: 
  Country: None (occurrence: None)
  Receive Date: 20110609
  Receipt Date: 20070919
  Transmission Date: 20111010
  Serious: Yes (Other)
  Sender: FDA-Public Use
  Company Number: PHMT2007CA01813

PATIENT
  Sex: Male

DRUGS (5)
  1. TYLENOL W/ CODEINE NO. 3 [Concomitant]
  2. ASPIRIN [Concomitant]
     Dosage: 81 MG, QD
  3. DIOVAN [Suspect]
     Indication: HYPERTENSION
     Dosage: 160 MG
     Route: 048
     Dates: start: 20020101
  4. RHOTRAL [Concomitant]
     Dosage: 200 MG, BID
  5. NOVOHYDRAZIDE [Concomitant]
     Dosage: 25 MG, QD

REACTIONS (2)
  - HEADACHE [None]
  - HYPERTENSION [None]
